FAERS Safety Report 15295749 (Version 3)
Quarter: 2019Q1

REPORT INFORMATION
  Report Type: Spontaneous
  Country: US (occurrence: US)
  Receive Date: 20180820
  Receipt Date: 20190110
  Transmission Date: 20190417
  Serious: Yes (Other)
  Sender: FDA-Public Use
  Company Number: US-SA-2018SA228094

PATIENT
  Age: 44 Year
  Sex: Female
  Weight: 185 kg

DRUGS (7)
  1. CYTOXAN [Concomitant]
     Active Substance: CYCLOPHOSPHAMIDE
     Indication: PRODUCT USED FOR UNKNOWN INDICATION
  2. HERCEPTIN [Concomitant]
     Active Substance: TRASTUZUMAB
     Indication: PRODUCT USED FOR UNKNOWN INDICATION
  3. NEOSAR [Concomitant]
     Active Substance: CYCLOPHOSPHAMIDE
     Indication: PRODUCT USED FOR UNKNOWN INDICATION
  4. AMLODIPINE [Concomitant]
     Active Substance: AMLODIPINE BESYLATE
     Dosage: UNK
     Dates: start: 2000, end: 2012
  5. TAXOTERE [Suspect]
     Active Substance: DOCETAXEL
     Dosage: 140 MG, QOW
     Route: 042
     Dates: start: 20070322, end: 20070322
  6. ADRIAMYCIN [Concomitant]
     Active Substance: DOXORUBICIN HYDROCHLORIDE
     Indication: PRODUCT USED FOR UNKNOWN INDICATION
  7. TAXOTERE [Suspect]
     Active Substance: DOCETAXEL
     Indication: INTRADUCTAL PROLIFERATIVE BREAST LESION
     Dosage: 140 UNK, QOW
     Route: 042
     Dates: start: 20070209, end: 20070209

REACTIONS (2)
  - Psychological trauma [Unknown]
  - Alopecia [Not Recovered/Not Resolved]

NARRATIVE: CASE EVENT DATE: 200703
